FAERS Safety Report 15392849 (Version 18)
Quarter: 2022Q2

REPORT INFORMATION
  Report Type: Spontaneous
  Country: JP (occurrence: JP)
  Receive Date: 20180917
  Receipt Date: 20220408
  Transmission Date: 20220721
  Serious: Yes (Life-Threatening, Hospitalization, Other)
  Sender: FDA-Public Use
  Company Number: JP-BRISTOL-MYERS SQUIBB COMPANY-BMS-2018-072954

PATIENT
  Age: 55 Year
  Sex: Female
  Weight: 64 kg

DRUGS (4)
  1. OPDIVO [Suspect]
     Active Substance: NIVOLUMAB
     Indication: Malignant melanoma
     Dosage: 192.6 MILLIGRAM, Q2WK
     Route: 041
     Dates: start: 20180712, end: 20180712
  2. OPDIVO [Suspect]
     Active Substance: NIVOLUMAB
     Dosage: 189 MILLIGRAM
     Route: 041
     Dates: start: 20180726, end: 20180726
  3. VIMPAT [Concomitant]
     Active Substance: LACOSAMIDE
     Indication: Product used for unknown indication
     Dosage: UNK
     Route: 048
  4. VIMPAT [Concomitant]
     Active Substance: LACOSAMIDE
     Dosage: UNK
     Route: 048

REACTIONS (9)
  - Myasthenia gravis [Not Recovered/Not Resolved]
  - Rhabdomyolysis [Recovered/Resolved]
  - Myocarditis [Recovering/Resolving]
  - Hepatic function abnormal [Recovered/Resolved]
  - Deep vein thrombosis [Not Recovered/Not Resolved]
  - Immune-mediated myositis [Recovering/Resolving]
  - Aspartate aminotransferase increased [Unknown]
  - Blood creatine phosphokinase increased [Recovering/Resolving]
  - Alanine aminotransferase increased [Unknown]

NARRATIVE: CASE EVENT DATE: 20180727
